FAERS Safety Report 7688908-5 (Version None)
Quarter: 2011Q3

REPORT INFORMATION
  Report Type: 
  Country: None (occurrence: None)
  Receive Date: 20110817
  Receipt Date: 20110805
  Transmission Date: 20111222
  Serious: Yes (Other)
  Sender: FDA-Public Use
  Company Number: PHHY2011AU29593

PATIENT
  Sex: Female

DRUGS (8)
  1. ZOLEDRONOC ACID [Suspect]
     Indication: OSTEOPOROSIS
     Dosage: 5 MG
     Route: 042
     Dates: start: 20110401
  2. PLAQUENIL [Concomitant]
     Dosage: 400 MG, QHS
     Dates: start: 20020101
  3. PANAFCORTELONE [Concomitant]
     Dosage: 1 MG, PRN
     Dates: start: 20060101
  4. PREMARIN [Concomitant]
     Dosage: 0.3 MG, DAILY
     Route: 048
     Dates: start: 20060101
  5. COUMADIN [Concomitant]
     Dosage: UNK UKN, UNK
     Dates: start: 20020101
  6. MOBIC [Concomitant]
     Dosage: 15 MG, PRN
     Dates: start: 20070101
  7. SONE [Concomitant]
     Dosage: 5 MG, PRN
     Route: 048
     Dates: start: 20020101
  8. ESTALIS PATCHES [Concomitant]
     Dosage: 50/250 EVERY 3 TO 4 DAYS
     Route: 062
     Dates: start: 20101001

REACTIONS (1)
  - INTERNATIONAL NORMALISED RATIO INCREASED [None]
